FAERS Safety Report 9553712 (Version 2)
Quarter: 2013Q4

REPORT INFORMATION
  Report Type: Spontaneous
  Country: JP (occurrence: JP)
  Receive Date: 20130925
  Receipt Date: 20131025
  Transmission Date: 20140711
  Serious: Yes (Hospitalization)
  Sender: FDA-Public Use
  Company Number: JP-JNJFOC-20130911942

PATIENT
  Age: 31 Year
  Sex: Male
  Weight: 66 kg

DRUGS (6)
  1. REMICADE [Suspect]
     Indication: COLITIS ULCERATIVE
     Route: 042
     Dates: start: 20130605
  2. REMICADE [Suspect]
     Indication: COLITIS ULCERATIVE
     Route: 042
     Dates: start: 20130522
  3. PENTASA [Suspect]
     Indication: PRODUCT USED FOR UNKNOWN INDICATION
     Route: 048
  4. PREDONINE [Concomitant]
     Route: 048
     Dates: start: 20130506
  5. PREDONINE [Concomitant]
     Route: 048
     Dates: start: 20130628
  6. PARIET [Concomitant]
     Route: 048
     Dates: start: 20130506

REACTIONS (1)
  - Mononeuropathy multiplex [Recovered/Resolved with Sequelae]
